FAERS Safety Report 23555597 (Version 1)
Quarter: 2024Q1

REPORT INFORMATION
  Report Type: Spontaneous
  Country: RU (occurrence: RU)
  Receive Date: 20240222
  Receipt Date: 20240222
  Transmission Date: 20240409
  Serious: Yes (Hospitalization)
  Sender: FDA-Public Use
  Company Number: RU-B.Braun Medical Inc.-2153571

PATIENT
  Age: 36 Year
  Sex: Male
  Weight: 85 kg

DRUGS (5)
  1. SODIUM CHLORIDE [Suspect]
     Active Substance: SODIUM CHLORIDE
     Route: 042
     Dates: start: 20231201, end: 20231204
  2. PREDNISOLONE [Suspect]
     Active Substance: PREDNISOLONE
  3. CLENIL UDV [Concomitant]
  4. Ipraterol [Concomitant]
  5. AMBROXOL [Concomitant]
     Active Substance: AMBROXOL

REACTIONS (5)
  - Cold sweat [Recovering/Resolving]
  - Tachycardia [Recovering/Resolving]
  - Hypotension [Recovering/Resolving]
  - Nausea [Recovering/Resolving]
  - Dizziness [Recovering/Resolving]
